FAERS Safety Report 6880785-5 (Version None)
Quarter: 2010Q3

REPORT INFORMATION
  Report Type: 
  Country: None (occurrence: None)
  Receive Date: 20100728
  Receipt Date: 20100720
  Transmission Date: 20110219
  Serious: Yes (Hospitalization)
  Sender: FDA-Public Use
  Company Number: US-AMGEN-KDL425741

PATIENT
  Sex: Female

DRUGS (1)
  1. ENBREL [Suspect]
     Indication: RHEUMATOID ARTHRITIS
     Route: 058
     Dates: start: 20040822

REACTIONS (4)
  - EAR DISCOMFORT [None]
  - HEADACHE [None]
  - MIDDLE EAR EFFUSION [None]
  - RHEUMATOID ARTHRITIS [None]
